FAERS Safety Report 9270033 (Version 2)
Quarter: 2013Q2

REPORT INFORMATION
  Report Type: Spontaneous
  Country: DK (occurrence: DK)
  Receive Date: 20130503
  Receipt Date: 20130514
  Transmission Date: 20140414
  Serious: Yes (Hospitalization)
  Sender: FDA-Public Use
  Company Number: DK-ROCHE-1218031

PATIENT
  Age: 53 Year
  Sex: Male
  Weight: 76 kg

DRUGS (9)
  1. ROACTEMRA [Suspect]
     Indication: RHEUMATOID ARTHRITIS
     Route: 042
     Dates: start: 201010
  2. ROACTEMRA [Suspect]
     Route: 065
     Dates: start: 201104
  3. ROACTEMRA [Suspect]
     Route: 042
     Dates: start: 20110515
  4. METHOTREXATE [Suspect]
     Indication: RHEUMATOID ARTHRITIS
     Route: 048
     Dates: start: 20070201
  5. METHOTREXATE [Suspect]
     Dosage: DOSE DECREASED, FREQUENCY INTERVAL 5WEEKS
     Route: 048
  6. FOLIC ACID [Suspect]
     Indication: RHEUMATOID ARTHRITIS
     Route: 048
     Dates: start: 20070201
  7. PREDNISOLONE [Concomitant]
     Indication: ARTHRITIS REACTIVE
     Route: 048
  8. ENBREL [Concomitant]
     Route: 058
     Dates: start: 201003, end: 201105
  9. ENBREL [Concomitant]
     Route: 058

REACTIONS (4)
  - Arthritis [Unknown]
  - Rheumatoid arthritis [Recovered/Resolved]
  - Musculoskeletal stiffness [Recovered/Resolved]
  - Arthralgia [Recovered/Resolved]
